FAERS Safety Report 20337039 (Version 2)
Quarter: 2022Q1

REPORT INFORMATION
  Report Type: Report from Study
  Country: US (occurrence: US)
  Receive Date: 20220114
  Receipt Date: 20220227
  Transmission Date: 20220423
  Serious: Yes (Hospitalization, Other)
  Sender: FDA-Public Use
  Company Number: US-TEVA-2022-US-1998179

PATIENT
  Age: 20 Year
  Sex: Male
  Weight: 108.85 kg

DRUGS (10)
  1. METHOTREXATE [Suspect]
     Active Substance: METHOTREXATE
     Indication: Precursor B-lymphoblastic lymphoma
     Route: 048
     Dates: start: 20190218, end: 20201230
  2. METHOTREXATE [Suspect]
     Active Substance: METHOTREXATE
     Dosage: VARIOUS
     Route: 048
     Dates: start: 20210114
  3. VINCRISTINE [Suspect]
     Active Substance: VINCRISTINE
     Indication: Precursor B-lymphoblastic lymphoma
     Route: 042
     Dates: start: 20190218, end: 20201230
  4. VINCRISTINE [Suspect]
     Active Substance: VINCRISTINE
     Route: 042
     Dates: start: 20210114
  5. MERCAPTOPURINE [Suspect]
     Active Substance: MERCAPTOPURINE
     Indication: Precursor B-lymphoblastic lymphoma
     Route: 048
     Dates: start: 20190218, end: 20211230
  6. MERCAPTOPURINE [Suspect]
     Active Substance: MERCAPTOPURINE
     Route: 048
     Dates: start: 20210114
  7. RUXOLITINIB [Suspect]
     Active Substance: RUXOLITINIB
     Indication: Precursor B-lymphoblastic lymphoma
     Dosage: 220 MILLIGRAM DAILY;
     Route: 048
     Dates: start: 20190218, end: 20201230
  8. RUXOLITINIB [Suspect]
     Active Substance: RUXOLITINIB
     Dosage: 220 MILLIGRAM DAILY;
     Route: 048
     Dates: start: 20210114
  9. OXYCODONE [Concomitant]
     Active Substance: OXYCODONE
  10. METHADONE [Concomitant]
     Active Substance: METHADONE HYDROCHLORIDE

REACTIONS (13)
  - Anaemia [Recovered/Resolved]
  - Headache [Unknown]
  - Fatigue [Unknown]
  - Asthenia [Unknown]
  - Pancytopenia [Unknown]
  - Red blood cell count decreased [Unknown]
  - Osteonecrosis [Unknown]
  - Coronavirus test positive [Recovered/Resolved]
  - Febrile neutropenia [Recovered/Resolved]
  - Pyrexia [Unknown]
  - Arthralgia [Not Recovered/Not Resolved]
  - Joint effusion [Unknown]
  - Synovitis [Unknown]

NARRATIVE: CASE EVENT DATE: 20201230
